FAERS Safety Report 9831846 (Version 2)
Quarter: 2014Q1

REPORT INFORMATION
  Report Type: Spontaneous
  Country: US (occurrence: US)
  Receive Date: 20140121
  Receipt Date: 20140121
  Transmission Date: 20141002
  Serious: Yes (Other)
  Sender: FDA-Public Use
  Company Number: US-BEH-2011028372

PATIENT
  Age: 68 Year
  Sex: Female
  Weight: 51 kg

DRUGS (39)
  1. HIZENTRA [Suspect]
     Dosage: 25 ML OVER 1 HOUR 34 MINUTES 20 % CONCENTRATION
     Route: 058
     Dates: start: 20110302
  2. HIZENTRA [Suspect]
     Route: 058
  3. HIZENTRA [Suspect]
     Indication: IMMUNODEFICIENCY COMMON VARIABLE
     Route: 058
  4. HIZENTRA [Suspect]
     Dosage: ??-???-2012; 25 ML; 2 SITES OVER 1 HOUR AND 34 MINUTES
     Route: 058
  5. HIZENTRA [Suspect]
     Dosage: ??-???-2012; 25 ML; 2 SITES OVER 1 HOUR AND 34 MINUTES
     Route: 058
  6. HIZENTRA [Suspect]
     Dosage: 1 GM 5 ML
     Route: 058
  7. HIZENTRA [Suspect]
     Dosage: 4 GM 20 ML VIAL
     Route: 058
  8. ZYRTEC [Concomitant]
  9. NEXIUM [Concomitant]
  10. LEXAPRO [Concomitant]
  11. LORAZEPAM [Concomitant]
  12. LOMOTIL [Concomitant]
  13. NABUMETONE [Concomitant]
  14. DONNATAL [Concomitant]
  15. TYLENOL [Concomitant]
  16. OSCAL [Concomitant]
  17. MULTIVITAMIN [Concomitant]
  18. GLUCOSAMINE CHONDROITIN [Concomitant]
  19. GARLIC OIL [Concomitant]
  20. POTASSIUM [Concomitant]
  21. VITAMIN B12 [Concomitant]
  22. DICYCLOMINE [Concomitant]
  23. VERAMYST [Concomitant]
  24. ALOE VERA [Concomitant]
  25. VITAMIN D [Concomitant]
  26. TUMS [Concomitant]
  27. CARAFATE [Concomitant]
  28. BONE DENSITY CALCIUM WITH D [Concomitant]
  29. DIPHENHYDRAMINE [Concomitant]
     Indication: PREMEDICATION
  30. EPI-PEN [Concomitant]
     Indication: PREMEDICATION
  31. LMX [Concomitant]
     Indication: PREMEDICATION
  32. TYLENOL PM [Concomitant]
  33. CYMBALTA [Concomitant]
  34. PRED FORTE EYE DROPS [Concomitant]
  35. ASPIRIN [Concomitant]
  36. MUCINEX [Concomitant]
  37. JUICE PLUS FIBRE LIQUID [Concomitant]
  38. IMIPRAMINE [Concomitant]
  39. LIDOCAINE [Concomitant]

REACTIONS (5)
  - Respiratory tract infection [Unknown]
  - Anxiety [Unknown]
  - Malaise [Unknown]
  - Abdominal pain upper [Unknown]
  - Upper respiratory tract infection [Unknown]
